FAERS Safety Report 19649620 (Version 2)
Quarter: 2022Q1

REPORT INFORMATION
  Report Type: Spontaneous
  Country: US (occurrence: US)
  Receive Date: 20210802
  Receipt Date: 20220328
  Transmission Date: 20220424
  Serious: No
  Sender: FDA-Public Use
  Company Number: US-PFIZER INC-2021454926

PATIENT
  Age: 72 Year
  Sex: Female

DRUGS (2)
  1. XELJANZ [Suspect]
     Active Substance: TOFACITINIB CITRATE
     Indication: Rheumatoid arthritis
     Dosage: UNK
  2. XELJANZ [Suspect]
     Active Substance: TOFACITINIB CITRATE
     Dosage: 5 MG, 2X/DAY
     Route: 048
     Dates: start: 202103

REACTIONS (7)
  - Drug ineffective [Unknown]
  - Dysstasia [Unknown]
  - Arthropathy [Unknown]
  - Weight decreased [Unknown]
  - Skin discolouration [Unknown]
  - Ear discomfort [Unknown]
  - Contusion [Unknown]
